FAERS Safety Report 9508367 (Version 1)
Quarter: 2013Q3

REPORT INFORMATION
  Report Type: Spontaneous
  Country: US (occurrence: None)
  Receive Date: 20130906
  Receipt Date: 20130906
  Transmission Date: 20140515
  Serious: Yes (Other)
  Sender: FDA-Public Use
  Company Number: None

PATIENT
  Age: 41 Year
  Sex: Female
  Weight: 49.9 kg

DRUGS (2)
  1. HEPARIN [Suspect]
     Indication: CENTRAL VENOUS CATHETERISATION
     Dates: start: 20130801, end: 20130826
  2. HEPARIN [Suspect]
     Indication: THERAPEUTIC PROCEDURE
     Dates: start: 20130801, end: 20130826

REACTIONS (2)
  - Pruritus [None]
  - Alopecia [None]
